FAERS Safety Report 8961104 (Version 3)
Quarter: 2020Q2

REPORT INFORMATION
  Report Type: Spontaneous
  Country: GB (occurrence: GB)
  Receive Date: 20121212
  Receipt Date: 20200617
  Transmission Date: 20200714
  Serious: Yes (Life-Threatening, Hospitalization, Other)
  Sender: FDA-Public Use
  Company Number: GB-PFIZER INC-2007304038

PATIENT
  Age: 64 Year
  Sex: Female
  Weight: 65 kg

DRUGS (7)
  1. AMOXICILLIN. [Suspect]
     Active Substance: AMOXICILLIN
     Indication: LOWER RESPIRATORY TRACT INFECTION
     Dosage: 500 MG, 3X/DAY
     Route: 048
     Dates: start: 20060508, end: 20060512
  2. ADCAL-D3 [Concomitant]
     Active Substance: CALCIUM CARBONATE\CHOLECALCIFEROL
     Indication: OSTEOPOROSIS PROPHYLAXIS
     Dosage: UNKNOWN 2/1 DAYS
     Route: 048
     Dates: start: 20050330, end: 20060524
  3. BUMETANIDE. [Concomitant]
     Active Substance: BUMETANIDE
     Indication: OEDEMA
     Dosage: 1 MG 1/1 DAYS
     Route: 048
     Dates: start: 20051004, end: 20060524
  4. COCODAMOL [Concomitant]
     Active Substance: ACETAMINOPHEN\CODEINE PHOSPHATE
     Indication: ARTHRALGIA
     Dosage: UNKNOWN 2/1 AS NECESSARY
     Route: 048
     Dates: start: 20050301, end: 20060516
  5. KLIOVANCE [Concomitant]
     Active Substance: ESTRADIOL\NORETHINDRONE ACETATE
     Indication: HORMONE REPLACEMENT THERAPY
     Dosage: UNKNOWN 1/1 DAYS
     Route: 048
     Dates: start: 20050331, end: 20060518
  6. IBUPROFEN. [Suspect]
     Active Substance: IBUPROFEN
     Dosage: UNK
  7. NAPROXEN. [Suspect]
     Active Substance: NAPROXEN
     Indication: ARTHRALGIA
     Dosage: 250 MG, 3X/DAY
     Route: 048
     Dates: start: 20051004

REACTIONS (5)
  - Liver function test abnormal [Recovering/Resolving]
  - Autoimmune hepatitis [Recovering/Resolving]
  - Jaundice [Recovering/Resolving]
  - Encephalitis [Recovering/Resolving]
  - Hepatic necrosis [Recovering/Resolving]

NARRATIVE: CASE EVENT DATE: 20060513
